FAERS Safety Report 17220304 (Version 4)
Quarter: 2023Q1

REPORT INFORMATION
  Report Type: Spontaneous
  Country: RO (occurrence: RO)
  Receive Date: 20191231
  Receipt Date: 20230214
  Transmission Date: 20230417
  Serious: Yes (Death, Other)
  Sender: FDA-Public Use
  Company Number: RO-KRKA-RO2019K15592LIT

PATIENT
  Age: 41 Year
  Sex: Female

DRUGS (14)
  1. TRASTUZUMAB [Suspect]
     Active Substance: TRASTUZUMAB
     Indication: Chemotherapy
     Dosage: 6 MG/KG; EVERY 3 WEEKS
     Route: 065
     Dates: start: 201501, end: 201706
  2. TRASTUZUMAB [Suspect]
     Active Substance: TRASTUZUMAB
     Indication: HER2 positive breast cancer
     Dosage: 3.6 MG/KG, 3X PER DAY
     Route: 065
     Dates: start: 201802
  3. TRASTUZUMAB [Suspect]
     Active Substance: TRASTUZUMAB
     Indication: Chemotherapy
     Dosage: 8 MG/KG; LOADING DOSE
     Route: 042
     Dates: start: 201501, end: 201706
  4. ZOLEDRONIC ACID [Suspect]
     Active Substance: ZOLEDRONIC ACID
     Indication: Radiotherapy
     Dosage: 4 MG; EVERY 3 WEEKS
     Route: 065
  5. ZOLEDRONIC ACID [Suspect]
     Active Substance: ZOLEDRONIC ACID
     Indication: Metastases to bone
  6. CAPECITABINE [Suspect]
     Active Substance: CAPECITABINE
     Indication: Chemotherapy
     Dosage: 2000 MG/M2, QD (DAYS 1-14)
     Route: 065
     Dates: start: 201602
  7. CAPECITABINE [Suspect]
     Active Substance: CAPECITABINE
     Indication: Breast cancer
  8. CAPECITABINE [Suspect]
     Active Substance: CAPECITABINE
     Indication: Metastases to central nervous system
  9. CAPECITABINE [Suspect]
     Active Substance: CAPECITABINE
     Indication: HER2 positive breast cancer
  10. LAPATINIB [Suspect]
     Active Substance: LAPATINIB
     Indication: Chemotherapy
     Dosage: 1250 MG, 1X PER DAY
     Route: 065
     Dates: start: 201602, end: 201802
  11. LAPATINIB [Suspect]
     Active Substance: LAPATINIB
     Indication: Metastases to central nervous system
  12. LAPATINIB [Suspect]
     Active Substance: LAPATINIB
     Indication: Breast cancer
  13. LAPATINIB [Suspect]
     Active Substance: LAPATINIB
     Indication: HER2 positive breast cancer
  14. PACLITAXEL [Suspect]
     Active Substance: PACLITAXEL
     Indication: HER2 positive breast cancer
     Dosage: 175 MILLIGRAM/SQ. METER, Q3W
     Route: 065
     Dates: end: 201501

REACTIONS (11)
  - Disease progression [Fatal]
  - Malignant neoplasm progression [Unknown]
  - Metastases to central nervous system [Unknown]
  - Breast cancer [Unknown]
  - Neuropathy peripheral [Unknown]
  - HER2 positive breast cancer [Unknown]
  - Headache [Unknown]
  - Vomiting [Unknown]
  - Off label use [Unknown]
  - Intentional product use issue [Unknown]
  - No adverse event [Unknown]
